FAERS Safety Report 23952831 (Version 3)
Quarter: 2024Q3

REPORT INFORMATION
  Report Type: Spontaneous
  Country: US (occurrence: None)
  Receive Date: 20240607
  Receipt Date: 20240827
  Transmission Date: 20241016
  Serious: No
  Sender: ASTRAZENECA
  Company Number: 2024A120880

PATIENT
  Sex: Male

DRUGS (1)
  1. BYDUREON BCISE [Suspect]
     Active Substance: EXENATIDE
     Dates: start: 20240514

REACTIONS (3)
  - Illness [Unknown]
  - Device difficult to use [Unknown]
  - Device leakage [Unknown]
